FAERS Safety Report 5164268-9 (Version None)
Quarter: 2006Q4

REPORT INFORMATION
  Report Type: 
  Country: None (occurrence: None)
  Receive Date: 20061128
  Receipt Date: 20061128
  Transmission Date: 20070319
  Serious: Yes (Other)
  Sender: FDA-Public Use
  Company Number: None

PATIENT
  Age: 46 Year
  Sex: Female
  Weight: 81.6475 kg

DRUGS (1)
  1. KROGER ACETAMINOPHEN    500 MG     KROGER [Suspect]
     Indication: HEADACHE
     Dosage: 3-4 TABLES PER DOSE   4-6 HOURS   PO
     Route: 048
     Dates: start: 20061001, end: 20061027

REACTIONS (4)
  - DIZZINESS [None]
  - DRUG INEFFECTIVE [None]
  - HEADACHE [None]
  - NAUSEA [None]
